FAERS Safety Report 10195886 (Version 1)
Quarter: 2014Q2

REPORT INFORMATION
  Report Type: Spontaneous
  Country: US (occurrence: US)
  Receive Date: 20140527
  Receipt Date: 20140527
  Transmission Date: 20141212
  Serious: Yes (Hospitalization, Other)
  Sender: FDA-Public Use
  Company Number: US-ASTELLAS-2014US005623

PATIENT
  Sex: Male

DRUGS (1)
  1. XTANDI [Suspect]
     Indication: PROSTATE CANCER
     Route: 048

REACTIONS (7)
  - Abasia [Unknown]
  - Blood urine present [Unknown]
  - Clostridium difficile infection [Unknown]
  - Neoplasm malignant [Unknown]
  - Weight decreased [Unknown]
  - Malaise [Unknown]
  - Eating disorder [Unknown]
